FAERS Safety Report 18523898 (Version 3)
Quarter: 2023Q1

REPORT INFORMATION
  Report Type: Spontaneous
  Country: US (occurrence: US)
  Receive Date: 20201119
  Receipt Date: 20230130
  Transmission Date: 20230418
  Serious: No
  Sender: FDA-Public Use
  Company Number: US-PFIZER INC-2020458183

PATIENT
  Age: 85 Year
  Sex: Male

DRUGS (1)
  1. IBRANCE [Suspect]
     Active Substance: PALBOCICLIB
     Dosage: 125 MG
     Dates: start: 20200101

REACTIONS (4)
  - Constipation [Unknown]
  - Taste disorder [Unknown]
  - COVID-19 [Recovering/Resolving]
  - Full blood count abnormal [Unknown]
